FAERS Safety Report 9540247 (Version 1)
Quarter: 2013Q3

REPORT INFORMATION
  Report Type: Spontaneous
  Country: IT (occurrence: None)
  Receive Date: 20130917
  Receipt Date: 20130917
  Transmission Date: 20140515
  Serious: Yes (Other)
  Sender: FDA-Public Use
  Company Number: AUR-APL-2013-07623

PATIENT
  Age: 86 Year
  Sex: Male

DRUGS (3)
  1. LEVOFLOXACIN [Suspect]
     Indication: RESPIRATORY TRACT INFECTION
     Dosage: TOTAL
     Route: 048
     Dates: start: 20130827, end: 20130827
  2. FOLOINA (FOLIC ACID) [Concomitant]
  3. ARIXTRA (FONDAPARINUX SODIUM) [Concomitant]

REACTIONS (4)
  - Syncope [None]
  - Dyspepsia [None]
  - Anaphylactoid reaction [None]
  - Disease prodromal stage [None]
